FAERS Safety Report 16467629 (Version 3)
Quarter: 2019Q3

REPORT INFORMATION
  Report Type: Spontaneous
  Country: US (occurrence: US)
  Receive Date: 20190624
  Receipt Date: 20190925
  Transmission Date: 20191004
  Serious: Yes (Other)
  Sender: FDA-Public Use
  Company Number: US-ASTRAZENECA-2019SE11061

PATIENT
  Age: 47 Year
  Sex: Female

DRUGS (41)
  1. FUROSEMIDE. [Concomitant]
     Active Substance: FUROSEMIDE
  2. INDOMETHACIN. [Concomitant]
     Active Substance: INDOMETHACIN
  3. CETRIZINE [Concomitant]
     Active Substance: CETIRIZINE HYDROCHLORIDE
  4. BYSTOLIC [Concomitant]
     Active Substance: NEBIVOLOL HYDROCHLORIDE
  5. PREVACID [Suspect]
     Active Substance: LANSOPRAZOLE
     Route: 065
     Dates: start: 20100101, end: 20160101
  6. LOVASTATIN. [Concomitant]
     Active Substance: LOVASTATIN
  7. BENICAR [Concomitant]
     Active Substance: OLMESARTAN MEDOXOMIL
  8. CIPROFLOXACIN. [Concomitant]
     Active Substance: CIPROFLOXACIN
  9. CODEINE [Concomitant]
     Active Substance: CODEINE
  10. GLIPIZIDE. [Concomitant]
     Active Substance: GLIPIZIDE
  11. FLUCONAZOLE. [Concomitant]
     Active Substance: FLUCONAZOLE
  12. METOLAZONE. [Concomitant]
     Active Substance: METOLAZONE
  13. NEXIUM [Suspect]
     Active Substance: ESOMEPRAZOLE MAGNESIUM
     Route: 048
     Dates: start: 20100101, end: 20160101
  14. MECLIZINE [Concomitant]
     Active Substance: MECLIZINE HYDROCHLORIDE
  15. LISINOPRIL. [Concomitant]
     Active Substance: LISINOPRIL
  16. METOPROLOL. [Concomitant]
     Active Substance: METOPROLOL
  17. NITROSTAT [Concomitant]
     Active Substance: NITROGLYCERIN
  18. LEVEMIR [Concomitant]
     Active Substance: INSULIN DETEMIR
  19. AMITRIPTYLIN [Concomitant]
     Active Substance: AMITRIPTYLINE
  20. HYDROCHLOROTHAZIDE [Concomitant]
  21. FERROUS SULFATE. [Concomitant]
     Active Substance: FERROUS SULFATE
  22. PREVACID [Suspect]
     Active Substance: LANSOPRAZOLE
     Dosage: FOR VARIOUS DATES AND YEARS
     Route: 065
  23. BUMETANIDE. [Concomitant]
     Active Substance: BUMETANIDE
  24. AZITHROMYCIN ANHYDROUS. [Concomitant]
     Active Substance: AZITHROMYCIN ANHYDROUS
  25. CEPHALEXIN. [Concomitant]
     Active Substance: CEPHALEXIN
  26. VITAMIN D2 [Concomitant]
     Active Substance: ERGOCALCIFEROL
  27. FAMOTIDINE. [Concomitant]
     Active Substance: FAMOTIDINE
  28. NEXIUM [Suspect]
     Active Substance: ESOMEPRAZOLE MAGNESIUM
     Dosage: FOR VARIOUS DATES AND YEARS
     Route: 048
  29. CALCITRIOL. [Concomitant]
     Active Substance: CALCITRIOL
  30. HYDROCODONE-ACETAMINOPHEN [Concomitant]
     Active Substance: ACETAMINOPHEN\HYDROCODONE
  31. METFORMIN [Concomitant]
     Active Substance: METFORMIN HYDROCHLORIDE
  32. TAMIFLU [Concomitant]
     Active Substance: OSELTAMIVIR PHOSPHATE
  33. TRAMADOL. [Concomitant]
     Active Substance: TRAMADOL
  34. HYDRALAZINE [Concomitant]
     Active Substance: HYDRALAZINE HYDROCHLORIDE
  35. KLOR-CON [Concomitant]
     Active Substance: POTASSIUM CHLORIDE
  36. LORATADINE. [Concomitant]
     Active Substance: LORATADINE
  37. PREDNISONE. [Concomitant]
     Active Substance: PREDNISONE
  38. LOSARTAN. [Concomitant]
     Active Substance: LOSARTAN
  39. CLONIDINE. [Concomitant]
     Active Substance: CLONIDINE
  40. ACETAMINOPHEN. [Concomitant]
     Active Substance: ACETAMINOPHEN
  41. ONDANSETRON [Concomitant]
     Active Substance: ONDANSETRON

REACTIONS (5)
  - Renal failure [Unknown]
  - Rebound acid hypersecretion [Unknown]
  - Chronic kidney disease [Not Recovered/Not Resolved]
  - Acute kidney injury [Unknown]
  - Renal injury [Unknown]

NARRATIVE: CASE EVENT DATE: 2016
